FAERS Safety Report 23372076 (Version 2)
Quarter: 2024Q1

REPORT INFORMATION
  Report Type: Spontaneous
  Country: US (occurrence: US)
  Receive Date: 20240105
  Receipt Date: 20240129
  Transmission Date: 20240409
  Serious: No
  Sender: FDA-Public Use
  Company Number: US-IDORSIA-007441-2023-US

PATIENT
  Age: 50 Year
  Sex: Male

DRUGS (3)
  1. QUVIVIQ [Suspect]
     Active Substance: DARIDOREXANT
     Indication: Insomnia
     Dosage: 50 MG, QD
     Route: 048
     Dates: start: 20231215, end: 20231217
  2. DULOXETINE [Concomitant]
     Active Substance: DULOXETINE
     Dosage: 30 MG
  3. MELOXICAM [Concomitant]
     Active Substance: MELOXICAM
     Dosage: 7.5 MG

REACTIONS (2)
  - Abdominal discomfort [Recovered/Resolved]
  - Diarrhoea [Recovered/Resolved]

NARRATIVE: CASE EVENT DATE: 20231216
